FAERS Safety Report 8524622-1 (Version None)
Quarter: 2012Q3

REPORT INFORMATION
  Report Type: 
  Country: None (occurrence: None)
  Receive Date: 20120720
  Receipt Date: 20120706
  Transmission Date: 20120928
  Serious: Yes (Death)
  Sender: FDA-Public Use
  Company Number: GB-MYLANLABS-2012S1013772

PATIENT
  Age: 45 Year
  Sex: Male
  Weight: 104.2 kg

DRUGS (6)
  1. ARIPRAZOLE [Suspect]
     Indication: SCHIZOPHRENIA
     Route: 048
  2. CLOZAPINE [Suspect]
     Indication: SCHIZOPHRENIA
     Route: 048
  3. MIRTAZAPINE [Suspect]
     Indication: DEPRESSED MOOD
     Route: 048
  4. CITALOPRAM HYDROBROMIDE [Suspect]
     Dates: start: 19941205
  5. CITALOPRAM HYDROBROMIDE [Suspect]
     Indication: DEPRESSED MOOD
     Route: 048
  6. CITALOPRAM HYDROBROMIDE [Suspect]
     Dates: start: 20010701

REACTIONS (3)
  - CONGESTIVE CARDIOMYOPATHY [None]
  - CARDIAC FAILURE CONGESTIVE [None]
  - ANTIPSYCHOTIC DRUG LEVEL ABOVE THERAPEUTIC [None]
